FAERS Safety Report 5920093-X (Version None)
Quarter: 2008Q4

REPORT INFORMATION
  Report Type: 
  Country: None (occurrence: None)
  Receive Date: 20081016
  Receipt Date: 20081013
  Transmission Date: 20090506
  Serious: Yes (Hospitalization, Other)
  Sender: FDA-Public Use
  Company Number: GB-RANBAXY-2008RR-12657

PATIENT
  Age: 61 Year
  Sex: Male

DRUGS (19)
  1. ZOCOR 40MG, TABLETTEN [Suspect]
     Indication: CARDIOVASCULAR EVENT PROPHYLAXIS
     Dosage: 40 MG, QD
     Route: 048
     Dates: start: 20040927
  2. ZOCOR 40MG, TABLETTEN [Suspect]
     Indication: HYPERCHOLESTEROLAEMIA
  3. ASCORBIC ACID [Concomitant]
     Indication: ROUTINE HEALTH MAINTENANCE
     Dosage: 500 MG, QD
     Route: 065
     Dates: start: 19980101
  4. ASPIRIN [Concomitant]
     Indication: CARDIOVASCULAR EVENT PROPHYLAXIS
     Dosage: 75 MG, QD
     Route: 065
     Dates: start: 20040927
  5. CLOPIDOGREL [Concomitant]
     Indication: CARDIOVASCULAR EVENT PROPHYLAXIS
     Dosage: 75 MG, QD
     Route: 065
     Dates: start: 20040927
  6. GLUCOSAMINE [Concomitant]
     Indication: ROUTINE HEALTH MAINTENANCE
     Dosage: 1000 MG, QD
     Route: 065
     Dates: start: 20030101
  7. OMEGA-3 MARINE TRIGLYCERIDES [Concomitant]
     Indication: ROUTINE HEALTH MAINTENANCE
     Dosage: 1000 MG, QD
     Route: 065
     Dates: start: 19980101
  8. FUROSEMIDE [Concomitant]
     Indication: HYPERTENSION
     Dosage: 40 MG, QD
     Dates: start: 20050330
  9. NICORANDIL [Concomitant]
     Indication: ANGINA PECTORIS
     Dosage: 30 MG, QD
     Dates: start: 20050330
  10. NITROGLYCERIN [Concomitant]
     Indication: ANGINA PECTORIS
     Dosage: 1 UNK, UNK
     Route: 055
     Dates: start: 20050425
  11. LANSOPRAZOLE [Concomitant]
     Indication: PROPHYLAXIS
     Dosage: 15 MG, QD
     Dates: start: 20050725
  12. ACETAMINOPHEN [Concomitant]
     Indication: HEADACHE
     Dosage: UNK
     Dates: start: 20050101
  13. DILTIAZEM HCL [Concomitant]
     Indication: ANGINA PECTORIS
     Dosage: 300 MG, UNK
     Dates: start: 20060315
  14. MONOMIL [Concomitant]
     Indication: ANGINA PECTORIS
     Dosage: 60 MG, UNK
     Dates: start: 20061010, end: 20070608
  15. MONOMIL [Concomitant]
     Dosage: UNK MG, QD
  16. RAMIPRIL [Concomitant]
     Indication: MYOCARDIAL INFARCTION
     Dosage: UNK
     Dates: start: 20070418
  17. CANDESARTAN [Concomitant]
     Indication: PROPHYLAXIS
     Dosage: 4 MG, QD
     Dates: start: 20070609
  18. NAPROXEN [Concomitant]
     Indication: OSTEOARTHRITIS
     Dosage: 500 MG, QD
  19. ISOSORBIDE MONONITRATE [Concomitant]
     Indication: ANGINA PECTORIS
     Dosage: 90 MG, QD

REACTIONS (6)
  - ANGINA PECTORIS [None]
  - BLOOD PRESSURE INCREASED [None]
  - CHEST PAIN [None]
  - DYSPNOEA [None]
  - HEADACHE [None]
  - MYOCARDIAL INFARCTION [None]
